FAERS Safety Report 15740126 (Version 1)
Quarter: 2018Q4

REPORT INFORMATION
  Report Type: Spontaneous
  Country: US (occurrence: US)
  Receive Date: 20181219
  Receipt Date: 20181219
  Transmission Date: 20190205
  Serious: Yes (Hospitalization)
  Sender: FDA-Public Use
  Company Number: US-ASTRAZENECA-2018SF66886

PATIENT
  Sex: Male

DRUGS (1)
  1. SYMBICORT [Suspect]
     Active Substance: BUDESONIDE\FORMOTEROL FUMARATE DIHYDRATE
     Indication: COUGH
     Dosage: 160/4.5 MCG UNKNOWN UNKNOWN
     Route: 055

REACTIONS (3)
  - Palpitations [Unknown]
  - Malaise [Unknown]
  - Infection [Unknown]

NARRATIVE: CASE EVENT DATE: 20181211
